FAERS Safety Report 22138480 (Version 2)
Quarter: 2023Q1

REPORT INFORMATION
  Report Type: Spontaneous
  Country: JP (occurrence: JP)
  Receive Date: 20230326
  Receipt Date: 20230329
  Transmission Date: 20230417
  Serious: Yes (Life-Threatening, Hospitalization, Other)
  Sender: FDA-Public Use
  Company Number: JP-UCBJ-CD202303211UCBPHAPROD

PATIENT
  Age: 13 Year
  Sex: Female
  Weight: 16.8 kg

DRUGS (2)
  1. VIMPAT [Suspect]
     Active Substance: LACOSAMIDE
     Indication: Epilepsy
     Dosage: 50 MILLIGRAM, ONCE DAILY (QD)
     Route: 048
     Dates: start: 20230310
  2. VIMPAT [Suspect]
     Active Substance: LACOSAMIDE
     Dosage: 50 MILLIGRAM, 2X/DAY (BID)
     Route: 048
     Dates: start: 20230317, end: 20230320

REACTIONS (6)
  - Respiratory depression [Unknown]
  - Cardiac failure [Unknown]
  - Cardiac arrest [Unknown]
  - Somnolence [Unknown]
  - Hypercapnia [Unknown]
  - Off label use [Unknown]

NARRATIVE: CASE EVENT DATE: 20230317
